FAERS Safety Report 17893587 (Version 1)
Quarter: 2020Q2

REPORT INFORMATION
  Report Type: Spontaneous
  Country: ES (occurrence: ES)
  Receive Date: 20200615
  Receipt Date: 20200615
  Transmission Date: 20200714
  Serious: Yes (Hospitalization)
  Sender: FDA-Public Use
  Company Number: ES-CADILA HEALTHCARE LIMITED-ES-ZYDUS-028838

PATIENT

DRUGS (4)
  1. SIMVASTATINA [Concomitant]
     Active Substance: SIMVASTATIN
     Dosage: 10 MILLIGRAM
     Route: 048
     Dates: start: 20170331
  2. TELMISARTAN. [Suspect]
     Active Substance: TELMISARTAN
     Indication: HYPERTENSION
     Dosage: 80 MILLIGRAM,80 MG DIA,(INTERVAL :1 DAYS)
     Route: 048
     Dates: start: 20170331, end: 20171007
  3. OMEPRAZOL [Concomitant]
     Active Substance: OMEPRAZOLE
     Dosage: 20 MILLIGRAM,20 MG DIA,(INTERVAL :1 DAYS)
     Route: 048
     Dates: start: 20170331
  4. ARTEDIL [Concomitant]
     Active Substance: MANIDIPINE HYDROCHLORIDE
     Indication: HYPERTENSION
     Dosage: 10 MILLIGRAM,1-0-0,(INTERVAL :1 DAYS)
     Route: 048
     Dates: start: 20170331

REACTIONS (1)
  - Pancreatitis acute [Recovered/Resolved]

NARRATIVE: CASE EVENT DATE: 20171002
